FAERS Safety Report 9250531 (Version 1)
Quarter: 2013Q1

REPORT INFORMATION
  Report Type: Spontaneous
  Country: US (occurrence: None)
  Receive Date: 20130305
  Receipt Date: 20130305
  Transmission Date: 20140127
  Serious: Yes (Hospitalization)
  Sender: FDA-Public Use
  Company Number: 163-21880-12062507

PATIENT
  Sex: Female

DRUGS (2)
  1. REVLIMID [Suspect]
     Indication: LYMPHOMA
     Dosage: 10MG, 1 IN 1 D, PO
     Route: 048
     Dates: start: 200906
  2. HEART MEDICATION (CARDIAC THERAPY) [Concomitant]

REACTIONS (1)
  - Loss of consciousness [None]
